FAERS Safety Report 16608218 (Version 1)
Quarter: 2019Q3

REPORT INFORMATION
  Report Type: Spontaneous
  Country: US (occurrence: US)
  Receive Date: 20190722
  Receipt Date: 20190722
  Transmission Date: 20191004
  Serious: Yes (Other)
  Sender: FDA-Public Use
  Company Number: US-PFIZER INC-2019309026

PATIENT

DRUGS (1)
  1. IBRANCE [Suspect]
     Active Substance: PALBOCICLIB
     Dosage: 25 MG, UNK

REACTIONS (4)
  - Eructation [Unknown]
  - Dizziness [Unknown]
  - Loss of consciousness [Unknown]
  - Dysgeusia [Unknown]
